FAERS Safety Report 16879617 (Version 1)
Quarter: 2019Q4

REPORT INFORMATION
  Report Type: Report from Study
  Country: IT (occurrence: IT)
  Receive Date: 20191003
  Receipt Date: 20191003
  Transmission Date: 20200122
  Serious: Yes (Hospitalization)
  Sender: FDA-Public Use
  Company Number: IT-TEVA-2019-IT-1116035

PATIENT
  Age: 72 Year
  Sex: Female

DRUGS (2)
  1. PIROXICAM. [Suspect]
     Active Substance: PIROXICAM
     Indication: NECK PAIN
     Dosage: 2 DF,  1DAY
     Route: 048
     Dates: start: 20190726, end: 20190804
  2. LYSINE ASPIRIN [Concomitant]
     Active Substance: ASPIRIN DL-LYSINE

REACTIONS (2)
  - Cholestatic pruritus [Recovering/Resolving]
  - Autoimmune hepatitis [Recovering/Resolving]

NARRATIVE: CASE EVENT DATE: 20190810
